FAERS Safety Report 22225764 (Version 3)
Quarter: 2023Q2

REPORT INFORMATION
  Report Type: Spontaneous
  Country: US (occurrence: US)
  Receive Date: 20230418
  Receipt Date: 20230610
  Transmission Date: 20230721
  Serious: No
  Sender: FDA-Public Use
  Company Number: US-AMGEN-USASP2023062538

PATIENT
  Age: 64 Year
  Sex: Female
  Weight: 68.04 kg

DRUGS (2)
  1. NEULASTA [Suspect]
     Active Substance: PEGFILGRASTIM
     Indication: Neoplasm malignant
     Dosage: UNK
     Route: 065
  2. NEULASTA [Suspect]
     Active Substance: PEGFILGRASTIM
     Indication: White blood cell count decreased
     Dosage: UNK
     Route: 065

REACTIONS (7)
  - Application site pruritus [Unknown]
  - Application site erythema [Unknown]
  - Needle issue [Unknown]
  - Application site laceration [Unknown]
  - Application site scab [Unknown]
  - Application site wound [Unknown]
  - Application site irritation [Unknown]

NARRATIVE: CASE EVENT DATE: 20230405
